FAERS Safety Report 13313443 (Version 1)
Quarter: 2017Q1

REPORT INFORMATION
  Report Type: Spontaneous
  Country: JP (occurrence: JP)
  Receive Date: 20170309
  Receipt Date: 20170309
  Transmission Date: 20170428
  Serious: Yes (Life-Threatening)
  Sender: FDA-Public Use
  Company Number: JP-MALLINCKRODT-T201700902

PATIENT
  Age: 48 Year
  Sex: Male
  Weight: 64 kg

DRUGS (11)
  1. CAMPTO [Concomitant]
     Active Substance: IRINOTECAN
     Indication: RECTAL CANCER
     Dosage: 280 MG, UNK
     Route: 051
     Dates: start: 20150501, end: 20150501
  2. VECTIBIX [Concomitant]
     Active Substance: PANITUMUMAB
     Dosage: 400 MG, UNK
     Route: 051
     Dates: start: 20150529, end: 20150529
  3. OXINORM [Concomitant]
     Active Substance: OXYCODONE HYDROCHLORIDE
     Indication: ANALGESIC THERAPY
     Dosage: 20 MG, PRN
     Route: 048
     Dates: start: 20150330
  4. OXIFAST [Concomitant]
     Active Substance: OXYCODONE
     Indication: ANALGESIC THERAPY
     Dosage: 40 MG, PRN
     Route: 051
     Dates: start: 20150329
  5. LYRICA [Concomitant]
     Active Substance: PREGABALIN
     Indication: ANALGESIC THERAPY
     Dosage: 375 MG, UNK
     Route: 048
     Dates: start: 20150320
  6. METHADONE [Suspect]
     Active Substance: METHADONE HYDROCHLORIDE
     Indication: CANCER PAIN
     Dosage: 15 MG, DAILY DOSE 45 MG
     Route: 048
     Dates: start: 20150330, end: 20150617
  7. TAKEPRON [Concomitant]
     Active Substance: LANSOPRAZOLE
     Dosage: 30 MG, UNK
     Route: 048
     Dates: start: 20150316
  8. LOXOPROFEN [Concomitant]
     Active Substance: LOXOPROFEN
     Indication: ANALGESIC THERAPY
     Dosage: 180 MG, UNK
     Route: 048
     Dates: start: 20150316
  9. VECTIBIX [Concomitant]
     Active Substance: PANITUMUMAB
     Dosage: 400 MG, UNK
     Route: 051
     Dates: start: 20150501, end: 20150501
  10. OXIFAST [Concomitant]
     Active Substance: OXYCODONE
     Dosage: 192 MG, UNK
     Route: 051
     Dates: start: 20150310, end: 20150330
  11. KETALAR [Concomitant]
     Active Substance: KETAMINE HYDROCHLORIDE
     Indication: ANALGESIC THERAPY
     Dosage: 144 MG, UNK
     Route: 051
     Dates: start: 20150328, end: 20150403

REACTIONS (2)
  - Anaemia [Recovering/Resolving]
  - Infection susceptibility increased [Unknown]

NARRATIVE: CASE EVENT DATE: 20150507
